FAERS Safety Report 4381398-X (Version None)
Quarter: 2004Q2

REPORT INFORMATION
  Report Type: 
  Country: None (occurrence: None)
  Receive Date: 20040616
  Receipt Date: 20040601
  Transmission Date: 20050107
  Serious: Yes (Death)
  Sender: FDA-Public Use
  Company Number: US_0406103407

PATIENT
  Age: 56 Year

DRUGS (3)
  1. FLUOXETINE [Suspect]
  2. AMITRIPTYLINE HCL [Concomitant]
  3. PAROXETINE HCL [Concomitant]

REACTIONS (2)
  - COMPLETED SUICIDE [None]
  - MULTIPLE DRUG OVERDOSE INTENTIONAL [None]
